FAERS Safety Report 13040909 (Version 7)
Quarter: 2018Q2

REPORT INFORMATION
  Report Type: Spontaneous
  Country: US (occurrence: US)
  Receive Date: 20161219
  Receipt Date: 20180607
  Transmission Date: 20180711
  Serious: Yes (Other)
  Sender: FDA-Public Use
  Company Number: US-PFIZER INC-2016575765

PATIENT
  Age: 53 Year
  Sex: Female

DRUGS (5)
  1. IBRANCE [Suspect]
     Active Substance: PALBOCICLIB
     Indication: BREAST CANCER METASTATIC
     Dosage: UNK
     Dates: start: 20151101
  2. IBRANCE [Suspect]
     Active Substance: PALBOCICLIB
     Dosage: 100 MG, UNK
     Dates: start: 20160708
  3. IBRANCE [Suspect]
     Active Substance: PALBOCICLIB
     Dosage: 125 MG, UNK
     Dates: start: 20151128, end: 20160708
  4. IBRANCE [Suspect]
     Active Substance: PALBOCICLIB
     Dosage: 100 MG, UNK
     Dates: start: 20151128
  5. LETROZOLE. [Concomitant]
     Active Substance: LETROZOLE
     Dosage: UNK
     Dates: start: 201508

REACTIONS (25)
  - Decreased appetite [Unknown]
  - Memory impairment [Unknown]
  - Weight decreased [Unknown]
  - Wrong technique in product usage process [Unknown]
  - Malaise [Unknown]
  - Arthralgia [Unknown]
  - Nausea [Unknown]
  - Body height decreased [Unknown]
  - Hot flush [Unknown]
  - Haematocrit decreased [Unknown]
  - Product use issue [Unknown]
  - Cognitive disorder [Unknown]
  - Weight increased [Unknown]
  - Hyperchlorhydria [Unknown]
  - Cachexia [Unknown]
  - Stomatitis [Unknown]
  - Neoplasm progression [Unknown]
  - Fatigue [Unknown]
  - Fluid retention [Unknown]
  - Chest pain [Recovering/Resolving]
  - Dysgeusia [Unknown]
  - Drug dose omission [Unknown]
  - Full blood count decreased [Unknown]
  - Haemoglobin decreased [Unknown]
  - Asthenia [Unknown]

NARRATIVE: CASE EVENT DATE: 20160708
